FAERS Safety Report 12364641 (Version 1)
Quarter: 2016Q2

REPORT INFORMATION
  Report Type: Spontaneous
  Country: US (occurrence: US)
  Receive Date: 20160512
  Receipt Date: 20160512
  Transmission Date: 20160815
  Serious: Yes (Hospitalization, Other)
  Sender: FDA-Public Use
  Company Number: US-MDT-ADR-2015-02328

PATIENT
  Age: 60 Year
  Sex: Female

DRUGS (4)
  1. BACLOFEN. [Suspect]
     Active Substance: BACLOFEN
     Route: 037
  2. KEFLEX [Suspect]
     Active Substance: CEPHALEXIN
     Route: 048
  3. CELEXA [Suspect]
     Active Substance: CITALOPRAM HYDROBROMIDE
     Route: 048
  4. KEPPRA [Suspect]
     Active Substance: LEVETIRACETAM
     Route: 048

REACTIONS (5)
  - Dizziness [Unknown]
  - Depressed level of consciousness [Unknown]
  - Drug withdrawal syndrome [Unknown]
  - Lethargy [Unknown]
  - Dysarthria [Unknown]

NARRATIVE: CASE EVENT DATE: 20151203
